FAERS Safety Report 14032991 (Version 1)
Quarter: 2017Q4

REPORT INFORMATION
  Report Type: Spontaneous
  Country: IT (occurrence: IT)
  Receive Date: 20171002
  Receipt Date: 20171002
  Transmission Date: 20180321
  Serious: Yes (Life-Threatening)
  Sender: FDA-Public Use
  Company Number: IT-PFIZER INC-2017417820

PATIENT
  Age: 43 Year
  Sex: Female

DRUGS (2)
  1. ERLOTINIB [Concomitant]
     Active Substance: ERLOTINIB
     Indication: LUNG ADENOCARCINOMA STAGE III
     Dosage: 150 MG, DAILY
     Dates: end: 201601
  2. CRIZOTINIB [Suspect]
     Active Substance: CRIZOTINIB
     Indication: LUNG ADENOCARCINOMA STAGE III
     Dosage: 500 MG, DAILY

REACTIONS (1)
  - Gastrointestinal toxicity [Unknown]
